FAERS Safety Report 4599352-1 (Version None)
Quarter: 2005Q1

REPORT INFORMATION
  Report Type: 
  Country: None (occurrence: None)
  Receive Date: 20050302
  Receipt Date: 20050302
  Transmission Date: 20050727
  Serious: Yes (Other)
  Sender: FDA-Public Use
  Company Number: None

PATIENT
  Age: 92 Year
  Sex: Female
  Weight: 46.2669 kg

DRUGS (1)
  1. QUINAPRIL [Suspect]
     Indication: HYPERTENSION
     Dosage: 40 MG Q AM
     Dates: start: 20050218

REACTIONS (1)
  - STOMACH DISCOMFORT [None]
